FAERS Safety Report 18531520 (Version 1)
Quarter: 2020Q4

REPORT INFORMATION
  Report Type: Spontaneous
  Country: GB (occurrence: GB)
  Receive Date: 20201122
  Receipt Date: 20201122
  Transmission Date: 20210114
  Serious: Yes (Other)
  Sender: FDA-Public Use
  Company Number: GB-BEH-2020125014

PATIENT
  Age: 55 Year
  Sex: Female
  Weight: 78 kg

DRUGS (17)
  1. MOMETASONE [Concomitant]
     Active Substance: MOMETASONE
  2. CARBOCISTEINE [Concomitant]
     Active Substance: CARBOCYSTEINE
  3. HIZENTRA [Suspect]
     Active Substance: HUMAN IMMUNOGLOBULIN G
     Dosage: 16 GRAM, QW
     Route: 058
     Dates: start: 20160201
  4. METFORMIN [Concomitant]
     Active Substance: METFORMIN HYDROCHLORIDE
  5. ADCAL D3 [Concomitant]
     Active Substance: CALCIUM CARBONATE\CHOLECALCIFEROL
  6. SALBUTAMOL [Concomitant]
     Active Substance: ALBUTEROL
  7. AMOXICILLIN. [Concomitant]
     Active Substance: AMOXICILLIN
  8. MONTELUKAST [Concomitant]
     Active Substance: MONTELUKAST SODIUM
  9. SODIUM CHLORIDE. [Concomitant]
     Active Substance: SODIUM CHLORIDE
     Dosage: NEBULISER
  10. FOSTAIR [Concomitant]
     Active Substance: BECLOMETHASONE\FORMOTEROL
     Dosage: INHALER
  11. OMEPRAZOLE. [Concomitant]
     Active Substance: OMEPRAZOLE
  12. REVOLADE [Concomitant]
     Active Substance: ELTROMBOPAG
  13. TIOTROPIUM [Concomitant]
     Active Substance: TIOTROPIUM
  14. ALENDRONIC ACID [Concomitant]
     Active Substance: ALENDRONIC ACID
  15. ATORVASTATIN [Concomitant]
     Active Substance: ATORVASTATIN
  16. HIZENTRA [Suspect]
     Active Substance: HUMAN IMMUNOGLOBULIN G
     Indication: IMMUNODEFICIENCY COMMON VARIABLE
     Dosage: 8 GRAM (40 ML), QH
     Route: 058
     Dates: start: 20160201
  17. FERROUS SULFATE. [Concomitant]
     Active Substance: FERROUS SULFATE

REACTIONS (7)
  - Dysphagia [Recovered/Resolved]
  - Blood pressure increased [Recovered/Resolved]
  - Chest pain [Recovered/Resolved]
  - Dizziness [Recovered/Resolved]
  - Throat tightness [Recovered/Resolved]
  - Palpitations [Recovered/Resolved]
  - Heart rate increased [Recovered/Resolved]

NARRATIVE: CASE EVENT DATE: 20201015
